FAERS Safety Report 4673954-6 (Version None)
Quarter: 2005Q2

REPORT INFORMATION
  Report Type: 
  Country: None (occurrence: None)
  Receive Date: 20050525
  Receipt Date: 20050516
  Transmission Date: 20051028
  Serious: Yes (Death, Life-Threatening)
  Sender: FDA-Public Use
  Company Number: MY-MERCK-0505MYS00012

PATIENT
  Sex: Male
  Weight: 70 kg

DRUGS (4)
  1. PRIMAXIN [Suspect]
     Indication: SEPTIC SHOCK
     Route: 041
     Dates: start: 20050501, end: 20050501
  2. PRIMAXIN [Suspect]
     Route: 041
     Dates: start: 20050501, end: 20050501
  3. PRIMAXIN [Suspect]
     Indication: PYREXIA
     Route: 041
     Dates: start: 20050501, end: 20050501
  4. PRIMAXIN [Suspect]
     Route: 041
     Dates: start: 20050501, end: 20050501

REACTIONS (2)
  - PYREXIA [None]
  - SEPTIC SHOCK [None]
